FAERS Safety Report 9552163 (Version 3)
Quarter: 2013Q4

REPORT INFORMATION
  Report Type: Report from Study
  Country: MX (occurrence: MX)
  Receive Date: 20130925
  Receipt Date: 20131003
  Transmission Date: 20140711
  Serious: Yes (Death)
  Sender: FDA-Public Use
  Company Number: PHHY2011MX102416

PATIENT
  Age: 85 Year
  Sex: Female

DRUGS (2)
  1. ACLASTA [Suspect]
     Indication: OSTEOPOROSIS
     Dosage: 5 MG/100 ML, ANNUAL
     Route: 042
     Dates: start: 20111114
  2. ALENDRONATE [Concomitant]
     Dosage: UNK UKN, UNK

REACTIONS (3)
  - Infarction [Fatal]
  - General physical health deterioration [Unknown]
  - Pain [Not Recovered/Not Resolved]
